FAERS Safety Report 13744482 (Version 1)
Quarter: 2017Q3

REPORT INFORMATION
  Report Type: Spontaneous
  Country: US (occurrence: US)
  Receive Date: 20170712
  Receipt Date: 20170712
  Transmission Date: 20171127
  Serious: No
  Sender: FDA-Public Use
  Company Number: US-ASTRAZENECA-2017SE61906

PATIENT
  Sex: Female

DRUGS (27)
  1. GARCINIA CAMBOGIA [Concomitant]
     Active Substance: HYDROXYCITRIC ACID
  2. FOLIC ACID. [Concomitant]
     Active Substance: FOLIC ACID
  3. PREDNISONE. [Concomitant]
     Active Substance: PREDNISONE
  4. LEVONORGESTREL. [Concomitant]
     Active Substance: LEVONORGESTREL
  5. ADVIL [Concomitant]
     Active Substance: IBUPROFEN
  6. ALLEGRA [Concomitant]
     Active Substance: FEXOFENADINE HYDROCHLORIDE
  7. BONIVA [Concomitant]
     Active Substance: IBANDRONATE SODIUM
  8. GREEN TEA EXTRACT [Concomitant]
  9. LUTEIN [Concomitant]
     Active Substance: LUTEIN
  10. LEFLUNOMIDE. [Concomitant]
     Active Substance: LEFLUNOMIDE
  11. TOFACITINIB [Concomitant]
     Active Substance: TOFACITINIB
     Indication: RHEUMATOID ARTHRITIS
  12. CRANBERRY. [Concomitant]
     Active Substance: CRANBERRY
  13. VITAMIN B12 [Concomitant]
     Active Substance: CYANOCOBALAMIN
  14. ESTRADIOL. [Concomitant]
     Active Substance: ESTRADIOL
  15. ADVIL PM [Concomitant]
     Active Substance: DIPHENHYDRAMINE CITRATE\IBUPROFEN
  16. ETHYL CHLORIDE [Concomitant]
     Active Substance: ETHYL CHLORIDE
  17. SULFASALAZINE. [Concomitant]
     Active Substance: SULFASALAZINE
     Indication: RHEUMATOID ARTHRITIS
  18. TURMERIC [Concomitant]
     Active Substance: HERBALS\TURMERIC
  19. RANITIDINE. [Concomitant]
     Active Substance: RANITIDINE
  20. MAGNESIUM OXIDE. [Concomitant]
     Active Substance: MAGNESIUM OXIDE
  21. PANTOPRAZOLE [Concomitant]
     Active Substance: PANTOPRAZOLE
  22. ZOLMITRIPTAN. [Suspect]
     Active Substance: ZOLMITRIPTAN
     Route: 065
  23. FISH OIL [Concomitant]
     Active Substance: FISH OIL
  24. COQ10 [Concomitant]
     Active Substance: UBIDECARENONE
  25. GLUCOSAMINE+CHONDROITIN [Concomitant]
  26. LEUCOVORIN CALCIUM. [Concomitant]
     Active Substance: LEUCOVORIN CALCIUM
  27. BUTALBITAL+ACETAMINOPHEN [Concomitant]

REACTIONS (4)
  - Arthralgia [Not Recovered/Not Resolved]
  - Tendonitis [Unknown]
  - Urinary tract infection [Recovered/Resolved]
  - Constipation [Unknown]
